FAERS Safety Report 11471894 (Version 1)
Quarter: 2015Q3

REPORT INFORMATION
  Report Type: Spontaneous
  Country: TR (occurrence: TR)
  Receive Date: 20150908
  Receipt Date: 20150908
  Transmission Date: 20151125
  Serious: Yes (Other)
  Sender: FDA-Public Use
  Company Number: TR-JNJFOC-20150900414

PATIENT
  Age: 37 Year
  Sex: Male

DRUGS (1)
  1. RISPERDAL CONSTA [Suspect]
     Active Substance: RISPERIDONE
     Indication: SCHIZOPHRENIA
     Route: 030

REACTIONS (7)
  - Diarrhoea [Not Recovered/Not Resolved]
  - Nervousness [Not Recovered/Not Resolved]
  - Libido increased [Not Recovered/Not Resolved]
  - Somnolence [Not Recovered/Not Resolved]
  - Suicidal ideation [Not Recovered/Not Resolved]
  - Logorrhoea [Not Recovered/Not Resolved]
  - Flatulence [Not Recovered/Not Resolved]
